FAERS Safety Report 15404107 (Version 1)
Quarter: 2018Q3

REPORT INFORMATION
  Report Type: Spontaneous
  Country: US (occurrence: US)
  Receive Date: 20180919
  Receipt Date: 20180919
  Transmission Date: 20181010
  Serious: No
  Sender: FDA-Public Use
  Company Number: US-AVADEL SPECIALTY PHARMACEUTICALS, LLC-2018AVA00305

PATIENT
  Age: 75 Year
  Sex: Female

DRUGS (1)
  1. NOCTIVA [Suspect]
     Active Substance: DESMOPRESSIN ACETATE
     Dosage: 1 SPRAY PER NOSTRIL, 1X/DAY
     Route: 045
     Dates: start: 20180803, end: 20180829

REACTIONS (6)
  - Hypersensitivity [Unknown]
  - Cough [Unknown]
  - Incorrect dose administered [Recovered/Resolved]
  - Sneezing [Unknown]
  - Therapeutic response decreased [Recovered/Resolved]
  - Underdose [Unknown]

NARRATIVE: CASE EVENT DATE: 201808
